FAERS Safety Report 5402656-3 (Version None)
Quarter: 2007Q3

REPORT INFORMATION
  Report Type: 
  Country: None (occurrence: None)
  Receive Date: 20070730
  Receipt Date: 20070730
  Transmission Date: 20080115
  Serious: No
  Sender: FDA-Public Use
  Company Number: None

PATIENT
  Age: 36 Year
  Sex: Female
  Weight: 63.5036 kg

DRUGS (1)
  1. TOBRADEX [Suspect]
     Indication: CONJUNCTIVITIS
     Dosage: 1 DROP 3 TIMES PER DAY INTRAOCULAR
     Route: 031
     Dates: start: 20000808, end: 20000822

REACTIONS (5)
  - EPISTAXIS [None]
  - EYE INFECTION [None]
  - KERATOCONJUNCTIVITIS SICCA [None]
  - UNEVALUABLE EVENT [None]
  - VITREOUS FLOATERS [None]
